FAERS Safety Report 4939777-5 (Version None)
Quarter: 2006Q1

REPORT INFORMATION
  Report Type: 
  Country: None (occurrence: None)
  Receive Date: 20060310
  Receipt Date: 20050315
  Transmission Date: 20060701
  Serious: No
  Sender: FDA-Public Use
  Company Number: US-MERCK-0503USA03145

PATIENT
  Age: 58 Year
  Sex: Female
  Weight: 136 kg

DRUGS (1)
  1. VIOXX [Suspect]
     Indication: PAIN
     Route: 048
     Dates: end: 20040901

REACTIONS (3)
  - CARDIAC DISORDER [None]
  - GASTRIC DISORDER [None]
  - LUNG DISORDER [None]
